FAERS Safety Report 8244532-7 (Version None)
Quarter: 2012Q1

REPORT INFORMATION
  Report Type: 
  Country: None (occurrence: None)
  Receive Date: 20120329
  Receipt Date: 20120314
  Transmission Date: 20120608
  Serious: No
  Sender: FDA-Public Use
  Company Number: US-ENDO PHARMACEUTICALS INC.-OPER20120375

PATIENT
  Sex: Female

DRUGS (2)
  1. OPANA ER [Suspect]
     Indication: POST POLIO SYNDROME
  2. OPANA ER [Suspect]
     Indication: PAIN
     Route: 048
     Dates: start: 20110301

REACTIONS (5)
  - DIARRHOEA [None]
  - HEADACHE [None]
  - HYPERHIDROSIS [None]
  - CHILLS [None]
  - ASTHENIA [None]
